FAERS Safety Report 6719419-9 (Version None)
Quarter: 2010Q2

REPORT INFORMATION
  Report Type: 
  Country: None (occurrence: None)
  Receive Date: 20100511
  Receipt Date: 20100430
  Transmission Date: 20101027
  Serious: Yes (Hospitalization)
  Sender: FDA-Public Use
  Company Number: FR-BAXTER-2010BH012357

PATIENT
  Age: 58 Year
  Sex: Female
  Weight: 50 kg

DRUGS (4)
  1. HOLOXAN BAXTER [Suspect]
     Indication: SYNOVIAL SARCOMA
     Dosage: DOSE UNIT:GRAMS PER METERS SQUARED
     Route: 065
     Dates: start: 20100301, end: 20100301
  2. HOLOXAN BAXTER [Suspect]
     Dosage: DOSE UNIT:GRAMS PER METERS SQUARED
     Route: 065
     Dates: start: 20100301
  3. IMC-A12 [Suspect]
     Indication: SYNOVIAL SARCOMA
     Route: 042
     Dates: start: 20100119, end: 20100218
  4. NEUPOGEN [Concomitant]
     Indication: DRUG USE FOR UNKNOWN INDICATION
     Route: 065

REACTIONS (2)
  - MUCOSAL INFLAMMATION [None]
  - NEUTROPENIA [None]
